FAERS Safety Report 6743765-6 (Version None)
Quarter: 2010Q2

REPORT INFORMATION
  Report Type: 
  Country: None (occurrence: None)
  Receive Date: 20100525
  Receipt Date: 20100510
  Transmission Date: 20101027
  Serious: Yes (Other)
  Sender: FDA-Public Use
  Company Number: 011644

PATIENT
  Age: 63 Year
  Sex: Female

DRUGS (3)
  1. VIMPAT [Suspect]
     Indication: EPILEPSY
     Dosage: (200 MG QD ORAL)
     Route: 048
     Dates: start: 20090201
  2. KEPPRA [Concomitant]
  3. MYSOLINE [Concomitant]

REACTIONS (1)
  - ATRIAL FIBRILLATION [None]
